FAERS Safety Report 15578124 (Version 2)
Quarter: 2023Q4

REPORT INFORMATION
  Report Type: Report from Study
  Country: IT (occurrence: IT)
  Receive Date: 20181102
  Receipt Date: 20231027
  Transmission Date: 20240110
  Serious: Yes (Hospitalization, Other)
  Sender: FDA-Public Use
  Company Number: None

PATIENT

DRUGS (1)
  1. GRAZAX [Suspect]
     Active Substance: PHLEUM PRATENSE POLLEN
     Indication: Seasonal allergy
     Dosage: 75000 SQ-T, QW
     Dates: start: 20180901, end: 20180928

REACTIONS (6)
  - Angioedema [Recovered/Resolved]
  - Urticaria [Recovered/Resolved]
  - Bronchospasm [Recovered/Resolved]
  - Laryngospasm [Recovered/Resolved]
  - Angioedema [Unknown]
  - Urticaria [Unknown]

NARRATIVE: CASE EVENT DATE: 20180901
